FAERS Safety Report 7231696-7 (Version None)
Quarter: 2011Q1

REPORT INFORMATION
  Report Type: 
  Country: None (occurrence: None)
  Receive Date: 20110118
  Receipt Date: 20110106
  Transmission Date: 20110831
  Serious: No
  Sender: FDA-Public Use
  Company Number: US-B.I. PHARMACEUTICALS,INC./RIDGEFIELD-2011-BP-00626BP

PATIENT
  Sex: Female

DRUGS (7)
  1. SERTRALINE [Concomitant]
     Indication: DEPRESSION
  2. RANEXA [Suspect]
     Indication: CARDIAC DISORDER
     Dates: start: 20101201
  3. PRADAXA [Suspect]
     Indication: CEREBROVASCULAR ACCIDENT
     Dosage: 300 MG
     Route: 048
     Dates: start: 20101201
  4. SOTALOL [Concomitant]
     Indication: HYPERTENSION
  5. NITROGLYCERIN [Concomitant]
     Indication: CARDIAC DISORDER
  6. PRADAXA [Suspect]
     Indication: MYOCARDIAL INFARCTION
  7. LIPITOR [Concomitant]
     Indication: BLOOD CHOLESTEROL INCREASED

REACTIONS (1)
  - ALOPECIA [None]
